FAERS Safety Report 6890555-X (Version None)
Quarter: 2010Q3

REPORT INFORMATION
  Report Type: 
  Country: None (occurrence: None)
  Receive Date: 20100731
  Receipt Date: 20081130
  Transmission Date: 20110219
  Serious: No
  Sender: FDA-Public Use
  Company Number: US-PFIZER INC-2008101281

PATIENT
  Sex: Male
  Weight: 84.09 kg

DRUGS (6)
  1. LIPITOR [Suspect]
     Indication: BLOOD CHOLESTEROL INCREASED
  2. LISINOPRIL [Concomitant]
  3. PREVACID [Concomitant]
  4. WARFARIN SODIUM [Concomitant]
  5. DIAZIDE [Concomitant]
  6. ACETYLSALICYLIC ACID SRT [Concomitant]

REACTIONS (5)
  - AXILLARY PAIN [None]
  - MYALGIA [None]
  - PAIN IN EXTREMITY [None]
  - PAINFUL RESPIRATION [None]
  - WRONG TECHNIQUE IN DRUG USAGE PROCESS [None]
